FAERS Safety Report 5214517-3 (Version None)
Quarter: 2007Q1

REPORT INFORMATION
  Report Type: 
  Country: None (occurrence: None)
  Receive Date: 20070119
  Receipt Date: 20070119
  Transmission Date: 20070707
  Serious: Yes (Hospitalization)
  Sender: FDA-Public Use
  Company Number: None

PATIENT
  Sex: Female
  Weight: 71.3 kg

DRUGS (2)
  1. CYCLOPHOSPHAMIDE [Suspect]
     Dosage: 1104 MG
  2. DOXORUBICIN HYDROCHLORIDE [Suspect]
     Dosage: 110 MG

REACTIONS (5)
  - ASTHENIA [None]
  - BLOOD CULTURE POSITIVE [None]
  - ORAL INTAKE REDUCED [None]
  - ORAL PAIN [None]
  - STAPHYLOCOCCAL INFECTION [None]
